FAERS Safety Report 6111466-3 (Version None)
Quarter: 2009Q1

REPORT INFORMATION
  Report Type: 
  Country: None (occurrence: None)
  Receive Date: 20090309
  Receipt Date: 20090223
  Transmission Date: 20090719
  Serious: Yes (Hospitalization)
  Sender: FDA-Public Use
  Company Number: 2009AL001071

PATIENT
  Age: 40 Year
  Sex: Male

DRUGS (6)
  1. MIRTAZAPINE [Suspect]
     Indication: DEPRESSION
     Dosage: 45 MG; QD
     Dates: start: 19990501
  2. VENLAFAXINE HCL [Concomitant]
  3. LOFEPRAMINE [Concomitant]
  4. PAROXETINE HCL [Concomitant]
  5. DOTHIEPEN [Concomitant]
  6. BUSPIRONE HCL [Concomitant]

REACTIONS (6)
  - ALCOHOLIC LIVER DISEASE [None]
  - ANXIETY [None]
  - CALCINOSIS [None]
  - DEPRESSIVE SYMPTOM [None]
  - DISEASE RECURRENCE [None]
  - PANCREATITIS ACUTE [None]
